FAERS Safety Report 7740721-6 (Version None)
Quarter: 2011Q3

REPORT INFORMATION
  Report Type: 
  Country: None (occurrence: None)
  Receive Date: 20110909
  Receipt Date: 20110901
  Transmission Date: 20111222
  Serious: Yes (Other)
  Sender: FDA-Public Use
  Company Number: CA-JNJFOC-20110903294

PATIENT
  Age: 82 Year
  Sex: Female
  Weight: 68.04 kg

DRUGS (3)
  1. MONISTAT 7 [Suspect]
     Route: 067
  2. MONISTAT 7 [Suspect]
     Indication: FUNGAL INFECTION
     Dosage: ONCE EACH NIGHT FOR 2 NIGHTS
     Route: 067
     Dates: start: 20110830, end: 20110831
  3. NORVASC [Concomitant]
     Indication: CEREBROVASCULAR ACCIDENT
     Dosage: 1 AND HALF A DAY
     Route: 065
     Dates: start: 20020101

REACTIONS (3)
  - DRY MOUTH [None]
  - DYSPNOEA [None]
  - SWOLLEN TONGUE [None]
